FAERS Safety Report 6716561-3 (Version None)
Quarter: 2010Q2

REPORT INFORMATION
  Report Type: 
  Country: None (occurrence: None)
  Receive Date: 20100507
  Receipt Date: 20100428
  Transmission Date: 20101027
  Serious: Yes (Other)
  Sender: FDA-Public Use
  Company Number: US-ABBOTT-10P-163-0641663-00

PATIENT
  Sex: Male
  Weight: 136.2 kg

DRUGS (3)
  1. KALETRA [Suspect]
     Indication: HIV INFECTION
     Dosage: 200/50 MG
  2. DIDANOSINE [Concomitant]
     Indication: HIV INFECTION
  3. STAVUDINE [Concomitant]
     Indication: HIV INFECTION

REACTIONS (2)
  - BACK DISORDER [None]
  - DEVICE FAILURE [None]
